FAERS Safety Report 8128704-8 (Version None)
Quarter: 2012Q1

REPORT INFORMATION
  Report Type: 
  Country: None (occurrence: None)
  Receive Date: 20120210
  Receipt Date: 20110502
  Transmission Date: 20120608
  Serious: No
  Sender: FDA-Public Use
  Company Number: US-BRISTOL-MYERS SQUIBB COMPANY-15482201

PATIENT
  Age: 70 Year
  Sex: Male

DRUGS (2)
  1. STEROIDS [Concomitant]
  2. ORENCIA [Suspect]
     Dosage: DURATION:3MONTHS

REACTIONS (2)
  - PROSTATIC SPECIFIC ANTIGEN INCREASED [None]
  - ARTHROPATHY [None]
